FAERS Safety Report 11108302 (Version 3)
Quarter: 2015Q2

REPORT INFORMATION
  Report Type: Spontaneous
  Country: US (occurrence: US)
  Receive Date: 20150512
  Receipt Date: 20150619
  Transmission Date: 20150821
  Serious: Yes (Other)
  Sender: FDA-Public Use
  Company Number: US-ALLERGAN-1508778US

PATIENT
  Age: 54 Year
  Sex: Female
  Weight: 68.27 kg

DRUGS (1)
  1. LATISSE [Suspect]
     Active Substance: BIMATOPROST
     Indication: PRODUCT USED FOR UNKNOWN INDICATION
     Dosage: 1 GTT TO UPPER EYELIDS EVERY DAY  (AT NIGHT)
     Route: 061
     Dates: start: 2012

REACTIONS (2)
  - Drug ineffective [Unknown]
  - Breast cancer [Recovered/Resolved]

NARRATIVE: CASE EVENT DATE: 20141231
